FAERS Safety Report 20699098 (Version 2)
Quarter: 2022Q4

REPORT INFORMATION
  Report Type: Spontaneous
  Country: ES (occurrence: ES)
  Receive Date: 20220412
  Receipt Date: 20221122
  Transmission Date: 20230112
  Serious: Yes (Life-Threatening, Hospitalization, Other)
  Sender: FDA-Public Use
  Company Number: None

PATIENT
  Age: 80 Year
  Sex: Female
  Weight: 75 kg

DRUGS (2)
  1. ELIQUIS [Suspect]
     Active Substance: APIXABAN
     Indication: Atrial fibrillation
     Route: 065
     Dates: start: 20150923
  2. COMIRNATY [Suspect]
     Active Substance: TOZINAMERAN
     Indication: COVID-19 immunisation
     Dosage: DOSIS 1
     Route: 030
     Dates: start: 20210225, end: 20210225

REACTIONS (4)
  - Pharyngeal haematoma [Recovering/Resolving]
  - Spontaneous haematoma [Recovering/Resolving]
  - Laryngeal haematoma [Recovering/Resolving]
  - Lymphadenopathy mediastinal [Recovering/Resolving]

NARRATIVE: CASE EVENT DATE: 20210226
